FAERS Safety Report 6071779-0 (Version None)
Quarter: 2009Q1

REPORT INFORMATION
  Report Type: 
  Country: None (occurrence: None)
  Receive Date: 20090210
  Receipt Date: 20090204
  Transmission Date: 20090719
  Serious: Yes (Other)
  Sender: FDA-Public Use
  Company Number: US-BAYER-200910382BCC

PATIENT
  Age: 60 Year
  Sex: Female
  Weight: 85 kg

DRUGS (6)
  1. ALEVE [Suspect]
     Indication: JOINT INJURY
     Dosage: TOTAL DAILY DOSE: 220 MG  UNIT DOSE: 220 MG
     Dates: start: 20090203
  2. ALEVE [Suspect]
     Dosage: TOTAL DAILY DOSE: 440 MG  UNIT DOSE: 220 MG
     Dates: start: 20090130
  3. ALEVE [Suspect]
     Dosage: AS USED: 440-220  MG  UNIT DOSE: 220 MG
     Dates: start: 20090129
  4. GLUCOPHAGE [Concomitant]
  5. PROCARDIA [Concomitant]
  6. GLIPIZIDE [Concomitant]

REACTIONS (2)
  - DIARRHOEA [None]
  - HAEMATOCHEZIA [None]
